FAERS Safety Report 6499070-9 (Version None)
Quarter: 2009Q4

REPORT INFORMATION
  Report Type: 
  Country: None (occurrence: None)
  Receive Date: 20091215
  Receipt Date: 20091113
  Transmission Date: 20100525
  Serious: Yes (Other)
  Sender: FDA-Public Use
  Company Number: US-SANOFI-AVENTIS-2009SA007932

PATIENT
  Age: 55 Year
  Sex: Male

DRUGS (2)
  1. SOLOSTAR [Suspect]
     Dates: start: 20070101
  2. LANTUS [Suspect]
     Dosage: DOSE:36 UNIT(S)
     Route: 058
     Dates: start: 20070101

REACTIONS (1)
  - DEVICE MALFUNCTION [None]
